FAERS Safety Report 10580847 (Version 1)
Quarter: 2014Q4

REPORT INFORMATION
  Report Type: Spontaneous
  Country: US (occurrence: None)
  Receive Date: 20141112
  Receipt Date: 20141112
  Transmission Date: 20150529
  Serious: Yes (Other)
  Sender: FDA-Public Use
  Company Number: None

PATIENT
  Sex: Male

DRUGS (5)
  1. ANTIHISTAMINE [Concomitant]
     Active Substance: UNSPECIFIED INGREDIENT
  2. ASPIRIN. [Concomitant]
     Active Substance: ASPIRIN
  3. INVEGA SUSTENNA [Suspect]
     Active Substance: PALIPERIDONE PALMITATE
     Indication: SCHIZOAFFECTIVE DISORDER
     Dosage: ORAL + INJECTION
     Dates: start: 20110421
  4. COLD/FLU + TYLENOL [Concomitant]
  5. IBUPROFEN. [Concomitant]
     Active Substance: IBUPROFEN

REACTIONS (2)
  - Labyrinthitis [None]
  - Oculogyric crisis [None]

NARRATIVE: CASE EVENT DATE: 2011
